FAERS Safety Report 9722709 (Version 1)
Quarter: 2013Q4

REPORT INFORMATION
  Report Type: Spontaneous
  Country: US (occurrence: US)
  Receive Date: 20131202
  Receipt Date: 20131202
  Transmission Date: 20140711
  Serious: No
  Sender: FDA-Public Use
  Company Number: US-PFIZER INC-2013340931

PATIENT
  Age: 57 Year
  Sex: Female
  Weight: 66.21 kg

DRUGS (2)
  1. LYRICA [Suspect]
     Indication: NEUROPATHY PERIPHERAL
     Dosage: 25 MG, DAILY
     Dates: start: 2012
  2. LYRICA [Suspect]
     Indication: FIBROMYALGIA

REACTIONS (5)
  - Feeling abnormal [Recovering/Resolving]
  - Nasopharyngitis [Recovering/Resolving]
  - Malaise [Recovering/Resolving]
  - Neuropathy peripheral [Unknown]
  - Fibromyalgia [Unknown]
